FAERS Safety Report 17885418 (Version 1)
Quarter: 2020Q2

REPORT INFORMATION
  Report Type: Spontaneous
  Country: CN (occurrence: CN)
  Receive Date: 20200611
  Receipt Date: 20200611
  Transmission Date: 20200714
  Serious: Yes (Other)
  Sender: FDA-Public Use
  Company Number: CN-SHIRE-CN202017544

PATIENT

DRUGS (1)
  1. FLEXBUMIN [Suspect]
     Active Substance: ALBUMIN HUMAN
     Indication: PRODUCT USED FOR UNKNOWN INDICATION
     Dosage: UNK MILLILITER
     Route: 058
     Dates: start: 20200519, end: 20200523

REACTIONS (2)
  - HIV test positive [Unknown]
  - Discomfort [Unknown]
